FAERS Safety Report 11758277 (Version 1)
Quarter: 2015Q4

REPORT INFORMATION
  Report Type: Spontaneous
  Country: US (occurrence: US)
  Receive Date: 20151120
  Receipt Date: 20151120
  Transmission Date: 20160304
  Serious: Yes (Other)
  Sender: FDA-Public Use
  Company Number: US-SA-2015SA181483

PATIENT
  Sex: Female

DRUGS (26)
  1. DEMEROL [Suspect]
     Active Substance: MEPERIDINE HYDROCHLORIDE
     Route: 065
  2. LOSARTAN POTASSIUM. [Concomitant]
     Active Substance: LOSARTAN POTASSIUM
  3. ERYTHROMYCIN. [Suspect]
     Active Substance: ERYTHROMYCIN
     Route: 065
  4. ALTACE [Suspect]
     Active Substance: RAMIPRIL
     Route: 065
  5. LOTENSIN [Suspect]
     Active Substance: BENAZEPRIL HYDROCHLORIDE
     Route: 065
  6. SPIRONOLACTONE. [Concomitant]
     Active Substance: SPIRONOLACTONE
  7. SOMA [Concomitant]
     Active Substance: CARISOPRODOL
  8. AMOXICILLIN. [Suspect]
     Active Substance: AMOXICILLIN
     Route: 065
  9. ATORVASTATIN [Concomitant]
     Active Substance: ATORVASTATIN
  10. NORVASC [Concomitant]
     Active Substance: AMLODIPINE BESYLATE
  11. GABAPENTIN. [Concomitant]
     Active Substance: GABAPENTIN
  12. ZOFRAN [Concomitant]
     Active Substance: ONDANSETRON HYDROCHLORIDE
  13. VANCOMYCIN [Suspect]
     Active Substance: VANCOMYCIN
     Route: 065
  14. CLINDAMYCIN [Suspect]
     Active Substance: CLINDAMYCIN\CLINDAMYCIN PHOSPHATE
     Route: 065
  15. BENTYL [Concomitant]
     Active Substance: DICYCLOMINE HYDROCHLORIDE
  16. COREG [Suspect]
     Active Substance: CARVEDILOL
     Route: 065
  17. VALIUM [Suspect]
     Active Substance: DIAZEPAM
     Route: 065
  18. XARELTO [Concomitant]
     Active Substance: RIVAROXABAN
  19. XOPENEX HFA [Concomitant]
     Active Substance: LEVALBUTEROL TARTRATE
  20. CODEINE [Suspect]
     Active Substance: CODEINE
     Route: 065
  21. ULTRAM [Suspect]
     Active Substance: TRAMADOL HYDROCHLORIDE
     Route: 065
  22. TETANUS TOXOID [Suspect]
     Active Substance: CLOSTRIDIUM TETANI TOXOID ANTIGEN (FORMALDEHYDE INACTIVATED)
     Route: 065
  23. FLEXERIL [Concomitant]
     Active Substance: CYCLOBENZAPRINE HYDROCHLORIDE
  24. INOSINE [Suspect]
     Active Substance: INOSINE
     Route: 065
  25. XANAX [Concomitant]
     Active Substance: ALPRAZOLAM
  26. LOMOTIL [Concomitant]
     Active Substance: ATROPINE SULFATE\DIPHENOXYLATE HYDROCHLORIDE

REACTIONS (21)
  - Pyrexia [Unknown]
  - Gastrooesophageal reflux disease [Unknown]
  - Essential hypertension [Unknown]
  - Coronary artery occlusion [Unknown]
  - Medical device implantation [Unknown]
  - Rash [Unknown]
  - Drug hypersensitivity [Unknown]
  - Mitral valve prolapse [Unknown]
  - Scoliosis [Unknown]
  - Palpitations [Unknown]
  - Atrial flutter [Unknown]
  - Allergy to vaccine [Unknown]
  - Bronchitis chronic [Unknown]
  - Vomiting [Unknown]
  - Throat tightness [Unknown]
  - Exposure to toxic agent [Unknown]
  - Lung disorder [Unknown]
  - Obstructive airways disorder [Unknown]
  - Diverticulum [Unknown]
  - Diarrhoea [Unknown]
  - Hypertension [Unknown]

NARRATIVE: CASE EVENT DATE: 2007
